FAERS Safety Report 7378441-2 (Version None)
Quarter: 2011Q1

REPORT INFORMATION
  Report Type: 
  Country: None (occurrence: None)
  Receive Date: 20110328
  Receipt Date: 20110322
  Transmission Date: 20110831
  Serious: Yes (Disabling)
  Sender: FDA-Public Use
  Company Number: US-MERCK-1103USA02986

PATIENT
  Sex: Male

DRUGS (2)
  1. IVEMEND [Suspect]
     Indication: PROPHYLAXIS OF NAUSEA AND VOMITING
     Route: 041
     Dates: start: 20110301, end: 20110301
  2. CISPLATIN [Concomitant]
     Route: 065

REACTIONS (1)
  - CONVULSION [None]
